FAERS Safety Report 16769292 (Version 1)
Quarter: 2019Q3

REPORT INFORMATION
  Report Type: Spontaneous
  Country: US (occurrence: US)
  Receive Date: 20190903
  Receipt Date: 20190903
  Transmission Date: 20191005
  Serious: No
  Sender: FDA-Public Use
  Company Number: US-PTC THERAPEUTICS, INC.-US-2019PTC001188

PATIENT
  Age: 8 Year
  Sex: Male

DRUGS (7)
  1. EMFLAZA [Suspect]
     Active Substance: DEFLAZACORT
     Dosage: 1.1 ML, QD
     Route: 048
     Dates: start: 201905, end: 20190610
  2. EMFLAZA [Suspect]
     Active Substance: DEFLAZACORT
     Dosage: UNK, TABLET FORM
     Route: 048
  3. FIBER SUPPLEMENT [Concomitant]
     Active Substance: DIETARY SUPPLEMENT
     Indication: PRODUCT USED FOR UNKNOWN INDICATION
     Dosage: UNK
     Route: 065
  4. EMFLAZA [Suspect]
     Active Substance: DEFLAZACORT
     Indication: DUCHENNE MUSCULAR DYSTROPHY
     Dosage: 1.2 ML, QD
     Route: 048
     Dates: start: 20190610
  5. MULTIVITAMIN                       /00097801/ [Concomitant]
     Active Substance: VITAMINS
     Indication: PRODUCT USED FOR UNKNOWN INDICATION
     Dosage: UNK
     Route: 065
  6. VITAMIN D                          /00107901/ [Concomitant]
     Active Substance: ERGOCALCIFEROL
     Indication: PRODUCT USED FOR UNKNOWN INDICATION
     Dosage: UNK
     Route: 065
  7. EMFLAZA [Suspect]
     Active Substance: DEFLAZACORT
     Dosage: UNK
     Route: 048
     Dates: start: 20170627, end: 201905

REACTIONS (3)
  - Irritability [Unknown]
  - Frustration tolerance decreased [Recovering/Resolving]
  - Anger [Recovering/Resolving]

NARRATIVE: CASE EVENT DATE: 201905
